FAERS Safety Report 17566280 (Version 1)
Quarter: 2020Q1

REPORT INFORMATION
  Report Type: Spontaneous
  Country: FR (occurrence: FR)
  Receive Date: 20200320
  Receipt Date: 20200320
  Transmission Date: 20200409
  Serious: No
  Sender: FDA-Public Use
  Company Number: FR-009507513-2003FRA003652

PATIENT
  Sex: Female

DRUGS (1)
  1. DIPROLENE [Suspect]
     Active Substance: BETAMETHASONE DIPROPIONATE
     Indication: GENITAL INFECTION FUNGAL

REACTIONS (2)
  - Incorrect route of product administration [Unknown]
  - Product prescribing issue [Unknown]
